FAERS Safety Report 12657254 (Version 2)
Quarter: 2017Q4

REPORT INFORMATION
  Report Type: Spontaneous
  Country: US (occurrence: US)
  Receive Date: 20160816
  Receipt Date: 20171229
  Transmission Date: 20180320
  Serious: No
  Sender: FDA-Public Use
  Company Number: US-LUNDBECK-DKLU2016542

PATIENT
  Age: 43 Year
  Sex: Female

DRUGS (1)
  1. NORTHERA [Suspect]
     Active Substance: DROXIDOPA
     Indication: ORTHOSTATIC HYPOTENSION
     Route: 048
     Dates: start: 20160413

REACTIONS (3)
  - Muscle spasms [Unknown]
  - Blood pressure fluctuation [Unknown]
  - Blood pressure orthostatic decreased [Unknown]

NARRATIVE: CASE EVENT DATE: 201607
